FAERS Safety Report 7543037-6 (Version None)
Quarter: 2011Q2

REPORT INFORMATION
  Report Type: 
  Country: None (occurrence: None)
  Receive Date: 20110613
  Receipt Date: 20110607
  Transmission Date: 20111010
  Serious: Yes (Other)
  Sender: FDA-Public Use
  Company Number: US-PFIZER INC-2011078353

PATIENT
  Sex: Female

DRUGS (11)
  1. ZYRTEC [Concomitant]
     Dosage: UNK
  2. LISINOPRIL [Concomitant]
     Dosage: UNK
  3. ACETYLSALICYLIC ACID [Concomitant]
     Dosage: UNK
  4. SOMA [Concomitant]
     Dosage: UNK
  5. PRISTIQ [Suspect]
     Indication: ANXIETY
     Dosage: 50 MG, 1X/DAY
     Route: 048
     Dates: start: 20101013, end: 20110324
  6. ZANTAC [Concomitant]
     Dosage: UNK
  7. ABILIFY [Concomitant]
     Dosage: UNK
  8. XANAX [Concomitant]
     Dosage: UNK
  9. ZOCOR [Concomitant]
     Dosage: UNK
  10. PRISTIQ [Suspect]
     Indication: DEPRESSION
  11. LEVOTHYROXINE [Concomitant]
     Dosage: UNK

REACTIONS (2)
  - MIGRAINE WITH AURA [None]
  - VISUAL IMPAIRMENT [None]
